FAERS Safety Report 8606427-6 (Version None)
Quarter: 2012Q3

REPORT INFORMATION
  Report Type: 
  Country: None (occurrence: None)
  Receive Date: 20120820
  Receipt Date: 20120810
  Transmission Date: 20120928
  Serious: Yes (Other)
  Sender: FDA-Public Use
  Company Number: US-ROCHE-1061671

PATIENT
  Sex: Female
  Weight: 45.4 kg

DRUGS (3)
  1. ORTHO TRI-CYCLEN [Concomitant]
  2. ACCUTANE [Suspect]
     Indication: ACNE CYSTIC
     Dates: start: 19940406, end: 19940723
  3. ACCUTANE [Suspect]
     Dates: start: 19960229, end: 19960926

REACTIONS (5)
  - DEPRESSION [None]
  - IRRITABLE BOWEL SYNDROME [None]
  - COLITIS MICROSCOPIC [None]
  - INFLAMMATORY BOWEL DISEASE [None]
  - BIPOLAR DISORDER [None]
